FAERS Safety Report 4869801-X (Version None)
Quarter: 2005Q4

REPORT INFORMATION
  Report Type: 
  Country: None (occurrence: None)
  Receive Date: 20051223
  Receipt Date: 20051211
  Transmission Date: 20060501
  Serious: Yes (Other)
  Sender: FDA-Public Use
  Company Number: PHEH2005US07538

PATIENT
  Age: 81 Year
  Sex: Female
  Weight: 79.3795 kg

DRUGS (15)
  1. VISUDYNE [Suspect]
     Indication: MACULAR DEGENERATION
     Dosage: 10.98 MG DAILY IV
     Route: 042
     Dates: start: 20050503, end: 20050503
  2. WARFARIN [Concomitant]
  3. TOPROL [Concomitant]
  4. ALLEGRA [Concomitant]
  5. METFORMIN [Concomitant]
  6. GLYBURIDE [Concomitant]
  7. BUMETANIDE [Concomitant]
  8. THYROID TAB [Concomitant]
  9. DILTIAZEM HCL [Concomitant]
  10. PREVACID [Concomitant]
  11. KLOR-CON [Concomitant]
  12. TRAMADOL HCL [Concomitant]
  13. CENTRUM SILVER [Concomitant]
  14. OCUVITE [Concomitant]
  15. XALATAN [Concomitant]

REACTIONS (10)
  - ALBUMIN URINE PRESENT [None]
  - BLOOD GLUCOSE INCREASED [None]
  - BLOOD THYROID STIMULATING HORMONE DECREASED [None]
  - BLOOD URIC ACID INCREASED [None]
  - GLYCOSYLATED HAEMOGLOBIN INCREASED [None]
  - HAEMOGLOBIN URINE [None]
  - THROMBOCYTOPENIA [None]
  - URINE ALBUMIN/CREATININE RATIO INCREASED [None]
  - URINE ANALYSIS ABNORMAL [None]
  - WHITE BLOOD CELLS URINE POSITIVE [None]
